FAERS Safety Report 4696279-1 (Version None)
Quarter: 2005Q2

REPORT INFORMATION
  Report Type: 
  Country: None (occurrence: None)
  Receive Date: 20050621
  Receipt Date: 20050608
  Transmission Date: 20051028
  Serious: Yes (Death, Hospitalization)
  Sender: FDA-Public Use
  Company Number: JP-BRISTOL-MYERS SQUIBB COMPANY-13004635

PATIENT
  Age: 8 Decade
  Sex: Male

DRUGS (2)
  1. SINEMET [Suspect]
     Indication: PARKINSON'S DISEASE
     Route: 048
     Dates: end: 20050601
  2. MAGMITT [Concomitant]

REACTIONS (4)
  - ANOREXIA [None]
  - ORAL MUCOSAL DISCOLOURATION [None]
  - SEPSIS [None]
  - VOMITING [None]
